FAERS Safety Report 21576116 (Version 1)
Quarter: 2022Q4

REPORT INFORMATION
  Report Type: Other
  Country: PT (occurrence: PT)
  Receive Date: 20221110
  Receipt Date: 20221110
  Transmission Date: 20230113
  Serious: Yes (Other)
  Sender: FDA-Public Use
  Company Number: PT-DENTSPLY-2022SCDP000322

PATIENT
  Age: 22 Year
  Sex: Male
  Weight: 85 kg

DRUGS (1)
  1. LIDOCAINE HYDROCHLORIDE AND EPINEPHRINE BITARTRATE [Suspect]
     Active Substance: EPINEPHRINE BITARTRATE\LIDOCAINE HYDROCHLORIDE
     Indication: Analgesic therapy
     Dosage: 1.8 MILLILITER OF 36 MG/1.8ML + 0.0225 MG/1.8ML LIDOCAINE +  ADRENALINE NORMON SOLUTION FOR INJECTIO
     Route: 030
     Dates: start: 20220822, end: 20220822

REACTIONS (2)
  - Injection site pain [Recovered/Resolved]
  - Suspected product quality issue [Unknown]

NARRATIVE: CASE EVENT DATE: 20220822
